FAERS Safety Report 5466302-5 (Version None)
Quarter: 2007Q3

REPORT INFORMATION
  Report Type: 
  Country: None (occurrence: None)
  Receive Date: 20070919
  Receipt Date: 20070905
  Transmission Date: 20080115
  Serious: Yes (Hospitalization, Other)
  Sender: FDA-Public Use
  Company Number: 40544

PATIENT
  Age: 67 Year
  Sex: Male

DRUGS (1)
  1. ETOPOSIDE [Suspect]
     Indication: LUNG NEOPLASM MALIGNANT
     Dosage: 196 MG INTRAVENOUSLY, EVERY 2
     Route: 042
     Dates: start: 20070821

REACTIONS (1)
  - HAEMOPTYSIS [None]
